FAERS Safety Report 23816662 (Version 1)
Quarter: 2024Q2

REPORT INFORMATION
  Report Type: Spontaneous
  Country: US (occurrence: US)
  Receive Date: 20240504
  Receipt Date: 20240504
  Transmission Date: 20240715
  Serious: No
  Sender: FDA-Public Use
  Company Number: US-Accord-405689

PATIENT
  Sex: Female

DRUGS (1)
  1. FLUOROURACIL [Suspect]
     Active Substance: FLUOROURACIL
     Indication: Skin lesion
     Dosage: APPLY TWICE DAILY FOR TWO WEEKS

REACTIONS (2)
  - Scab [Unknown]
  - Expired product administered [Unknown]
